FAERS Safety Report 25214313 (Version 1)
Quarter: 2025Q2

REPORT INFORMATION
  Report Type: Spontaneous
  Country: US (occurrence: US)
  Receive Date: 20250418
  Receipt Date: 20250418
  Transmission Date: 20250717
  Serious: No
  Sender: ALKERMES
  Company Number: US-ALKERMES INC.-ALK-2025-000915

PATIENT
  Age: 33 Year
  Sex: Female

DRUGS (1)
  1. VIVITROL [Suspect]
     Active Substance: NALTREXONE
     Indication: Alcohol use disorder
     Route: 030

REACTIONS (5)
  - Tremor [Unknown]
  - Polyneuropathy alcoholic [Unknown]
  - Injection site pain [Unknown]
  - Injection site warmth [Unknown]
  - Injection site mass [Unknown]

NARRATIVE: CASE EVENT DATE: 20250401
